FAERS Safety Report 21279940 (Version 4)
Quarter: 2022Q4

REPORT INFORMATION
  Report Type: Report from Study
  Country: US (occurrence: US)
  Receive Date: 20220901
  Receipt Date: 20221209
  Transmission Date: 20230113
  Serious: No
  Sender: FDA-Public Use
  Company Number: US-NOVARTISTESTPH-NVSC2022US196791

PATIENT
  Sex: Male

DRUGS (5)
  1. TABRECTA [Suspect]
     Active Substance: CAPMATINIB
     Indication: Lung neoplasm malignant
     Dosage: 400 MG, BID
     Route: 048
  2. TABRECTA [Suspect]
     Active Substance: CAPMATINIB
     Dosage: 200 MG, BID
     Route: 048
  3. TABRECTA [Suspect]
     Active Substance: CAPMATINIB
     Dosage: 1 TAB, BID
     Route: 065
  4. TABRECTA [Suspect]
     Active Substance: CAPMATINIB
     Dosage: 3 TAB, BID
     Route: 065
     Dates: start: 20220712
  5. TABRECTA [Suspect]
     Active Substance: CAPMATINIB
     Dosage: 2 TABLETS IN AM, ONE TABLET IN PM, BID
     Route: 048

REACTIONS (6)
  - Dizziness [Recovered/Resolved]
  - Hypoaesthesia oral [Recovered/Resolved]
  - Peripheral swelling [Recovering/Resolving]
  - Fatigue [Recovered/Resolved]
  - Asthenia [Recovered/Resolved]
  - Decreased appetite [Recovered/Resolved]
